FAERS Safety Report 6284982-1 (Version None)
Quarter: 2009Q3

REPORT INFORMATION
  Report Type: 
  Country: None (occurrence: None)
  Receive Date: 20090727
  Receipt Date: 20080808
  Transmission Date: 20100115
  Serious: No
  Sender: FDA-Public Use
  Company Number: US-ABBOTT-08P-163-0471335-00

PATIENT
  Sex: Male

DRUGS (4)
  1. NORVIR [Suspect]
     Indication: DRUG USE FOR UNKNOWN INDICATION
     Dosage: TPV/R 1000/400MG
     Dates: start: 20080701
  2. NORVIR [Suspect]
     Dates: start: 20080201, end: 20080601
  3. APTIVUS [Suspect]
     Indication: DRUG USE FOR UNKNOWN INDICATION
     Dosage: TPV/R 1000/400MG
     Dates: start: 20080701
  4. APTIVUS [Suspect]
     Dosage: 4 TABS, TWICE DAILY
     Dates: start: 20080201, end: 20080601

REACTIONS (2)
  - HEADACHE [None]
  - OVERDOSE [None]
